FAERS Safety Report 6983996 (Version 3)
Quarter: 2014Q1

REPORT INFORMATION
  Report Type: Spontaneous
  Country: US (occurrence: US)
  Receive Date: 20090501
  Receipt Date: 20140318
  Transmission Date: 20141002
  Serious: Yes (Other)
  Sender: FDA-Public Use
  Company Number: US-ALEXION-A200700014

PATIENT
  Age: 46 Year
  Sex: Male
  Weight: 102 kg

DRUGS (39)
  1. SOLIRIS [Suspect]
     Indication: PAROXYSMAL NOCTURNAL HAEMOGLOBINURIA
     Dosage: 600 MG, SINGLE
     Route: 042
     Dates: start: 20070613, end: 20070613
  2. SOLIRIS [Suspect]
     Dosage: 600 MG, SINGLE
     Route: 042
     Dates: start: 20070620, end: 20070620
  3. SOLIRIS [Suspect]
     Dosage: 600 MG, SINGLE
     Route: 042
     Dates: start: 20070627, end: 20070627
  4. SOLIRIS [Suspect]
     Dosage: 600 MG, SINGLE
     Route: 042
     Dates: start: 20070704, end: 20070704
  5. SOLIRIS [Suspect]
     Dosage: 900 MG, SINGLE
     Route: 042
     Dates: start: 20070711, end: 20070711
  6. SOLIRIS [Suspect]
     Dosage: 900 MG, SINGLE
     Route: 042
     Dates: start: 20070725, end: 20070725
  7. SOLIRIS [Suspect]
     Dosage: 900 MG, SINGLE
     Route: 042
     Dates: start: 20070808, end: 20070808
  8. SOLIRIS [Suspect]
     Dosage: 900 MG, SINGLE
     Route: 042
     Dates: start: 20070822, end: 20070822
  9. SOLIRIS [Suspect]
     Dosage: 900 MG, SINGLE
     Route: 042
     Dates: start: 20080109, end: 20080109
  10. SOLIRIS [Suspect]
     Dosage: 900 MG, SINGLE
     Route: 042
     Dates: start: 20080123, end: 20080123
  11. SOLIRIS [Suspect]
     Dosage: 900 MG, SINGLE
     Route: 042
     Dates: start: 20080206, end: 20080206
  12. SOLIRIS [Suspect]
     Dosage: 900 MG, SINGLE
     Route: 042
     Dates: start: 20080220, end: 20080220
  13. SOLIRIS [Suspect]
     Dosage: 900 MG, SINGLE
     Route: 042
     Dates: start: 20080303, end: 20080303
  14. SOLIRIS [Suspect]
     Dosage: 900 MG, SINGLE
     Route: 042
     Dates: start: 20080319, end: 20080319
  15. SOLIRIS [Suspect]
     Dosage: 900 MG, SINGLE
     Route: 042
     Dates: start: 20080402, end: 20080402
  16. SOLIRIS [Suspect]
     Dosage: 900 MG, SINGLE
     Route: 042
     Dates: start: 20080416, end: 20080416
  17. SOLIRIS [Suspect]
     Dosage: 900 MG, SINGLE
     Route: 042
     Dates: start: 20080429, end: 20080429
  18. SOLIRIS [Suspect]
     Dosage: 900 MG, SINGLE
     Route: 042
     Dates: start: 20080514, end: 20080514
  19. SOLIRIS [Suspect]
     Dosage: 900 MG, SINGLE
     Route: 042
     Dates: start: 20080528, end: 20080528
  20. SOLIRIS [Suspect]
     Dosage: 900 MG, SINGLE
     Route: 042
     Dates: start: 20080611, end: 20080611
  21. PROTONIX  /01263201/ [Concomitant]
     Indication: GASTRIC DISORDER
     Dosage: 40 MG, QD
     Route: 048
  22. FOLIC ACID [Concomitant]
     Indication: SUPPLEMENTATION THERAPY
     Dosage: 1 MG, QD
     Route: 048
  23. PREDNISONE [Concomitant]
     Dosage: 10 MG, QD
     Route: 048
  24. EXJADE [Concomitant]
     Indication: MINERAL SUPPLEMENTATION
     Dosage: 2000 MG, QD
     Route: 048
  25. BENADRYL [Concomitant]
     Indication: PREMEDICATION
     Dosage: 25 MG, SINGLE
     Route: 042
     Dates: start: 20070613
  26. BENADRYL [Concomitant]
     Indication: PROPHYLAXIS
     Dosage: 25 MG, SINGLE
     Route: 042
     Dates: start: 20070613, end: 20070613
  27. BENADRYL [Concomitant]
     Dosage: 25 MG, SINGLE
     Route: 042
     Dates: start: 20070620, end: 20070620
  28. BENADRYL [Concomitant]
     Dosage: 25 MG, SINGLE
     Route: 042
     Dates: start: 20070627, end: 20070627
  29. BENADRYL [Concomitant]
     Dosage: 25 MG, SINGLE
     Route: 042
     Dates: start: 20070704, end: 20070704
  30. BENADRYL [Concomitant]
     Dosage: 25 MG, SINGLE
     Route: 042
     Dates: start: 20070711, end: 20070711
  31. BENADRYL [Concomitant]
     Dosage: UNK, SINGLE
     Route: 042
     Dates: start: 20070822, end: 20070822
  32. TYLENOL EXTRA-STRENGTH [Concomitant]
     Indication: PREMEDICATION
     Dosage: 2 TABLETS, SINGLE
     Dates: start: 20070613, end: 20070613
  33. DECADRON [Concomitant]
     Indication: PREMEDICATION
     Dosage: 10 MG, 2 DOSES
     Route: 042
     Dates: start: 20070620, end: 20070620
  34. DECADRON [Concomitant]
     Indication: PROPHYLAXIS
     Dosage: 4 MG, SINGLE
     Route: 042
  35. DECADRON [Concomitant]
     Dosage: BEFORE EVERY SOLIRIS INFUSION
     Dates: start: 20070627
  36. PEPCID [Concomitant]
     Indication: PREMEDICATION
     Dosage: 20 MG, SINGLE
     Dates: start: 20070620, end: 20070620
  37. PEPCID [Concomitant]
     Indication: PROPHYLAXIS
     Dosage: BEFORE EVERY SOLIRIS INFUSION
     Dates: start: 20070627
  38. TYLENOL [Concomitant]
     Indication: PREMEDICATION
     Dosage: 650 MG, SINGLE
     Route: 048
     Dates: start: 20070822
  39. VIDAZA [Concomitant]
     Indication: PRODUCT USED FOR UNKNOWN INDICATION
     Dosage: UNK
     Route: 065

REACTIONS (15)
  - Aplastic anaemia [Unknown]
  - Transfusion [Unknown]
  - Infusion related reaction [Recovered/Resolved]
  - Haemolysis [Recovered/Resolved]
  - Chromaturia [Recovering/Resolving]
  - Blood product transfusion dependent [Not Recovered/Not Resolved]
  - Muscle spasms [Recovered/Resolved]
  - Platelet count decreased [Not Recovered/Not Resolved]
  - Abdominal pain upper [Recovered/Resolved]
  - Abdominal pain [Recovering/Resolving]
  - Musculoskeletal pain [Recovered/Resolved]
  - Haemoglobin decreased [Not Recovered/Not Resolved]
  - Cough [Recovered/Resolved]
  - Fatigue [Recovered/Resolved]
  - Back pain [Recovering/Resolving]
